FAERS Safety Report 20097908 (Version 1)
Quarter: 2021Q4

REPORT INFORMATION
  Report Type: Spontaneous
  Country: JP (occurrence: JP)
  Receive Date: 20211122
  Receipt Date: 20211122
  Transmission Date: 20220304
  Serious: Yes (Death, Other)
  Sender: FDA-Public Use
  Company Number: JP-BAYER-2020-081868

PATIENT
  Age: 70 Year
  Sex: Male

DRUGS (3)
  1. XOFIGO [Suspect]
     Active Substance: RADIUM RA-223 DICHLORIDE
     Indication: Hormone-refractory prostate cancer
     Dosage: 55KBQ/KG AT A TIME, GIVEN SLOWLY INTRAVENOUSLY UP TO 6 TIMES AT 4-WEEK INTERVALS
     Route: 042
     Dates: start: 20190828, end: 20200116
  2. XOFIGO [Suspect]
     Active Substance: RADIUM RA-223 DICHLORIDE
     Indication: Metastases to bone
  3. XTANDI [Concomitant]
     Active Substance: ENZALUTAMIDE
     Dosage: UNK
     Dates: end: 202003

REACTIONS (2)
  - Death [Fatal]
  - Myelosuppression [Unknown]

NARRATIVE: CASE EVENT DATE: 20200210
